FAERS Safety Report 12174213 (Version 1)
Quarter: 2016Q1

REPORT INFORMATION
  Report Type: Spontaneous
  Country: IT (occurrence: IT)
  Receive Date: 20160314
  Receipt Date: 20160314
  Transmission Date: 20160526
  Serious: Yes (Other)
  Sender: FDA-Public Use
  Company Number: IT-ASTRAZENECA-2016SE26449

PATIENT
  Age: 26497 Day
  Sex: Male

DRUGS (2)
  1. SEROQUEL XR [Suspect]
     Active Substance: QUETIAPINE FUMARATE
     Indication: AGITATION
     Route: 048
     Dates: start: 20160219, end: 20160222
  2. ZOLPIDEM [Concomitant]
     Active Substance: ZOLPIDEM\ZOLPIDEM TARTRATE
     Route: 048
     Dates: start: 20160112, end: 20160228

REACTIONS (3)
  - Sopor [Recovered/Resolved]
  - Unresponsive to stimuli [Recovered/Resolved]
  - Product use issue [Unknown]

NARRATIVE: CASE EVENT DATE: 20150222
